FAERS Safety Report 7528964-8 (Version None)
Quarter: 2011Q2

REPORT INFORMATION
  Report Type: 
  Country: None (occurrence: None)
  Receive Date: 20110607
  Receipt Date: 20110601
  Transmission Date: 20111010
  Serious: Yes (Hospitalization)
  Sender: FDA-Public Use
  Company Number: GB-PFIZER INC-2011119304

PATIENT
  Age: 64 Year
  Sex: Female

DRUGS (4)
  1. TRANEXAMIC ACID [Suspect]
     Indication: HAEMOPTYSIS
     Dosage: 4500 MG, UNK
     Route: 048
     Dates: end: 20110301
  2. TRANEXAMIC ACID [Suspect]
     Dosage: 1500 MG, UNK
     Route: 048
     Dates: start: 20110307, end: 20110318
  3. AUGMENTIN '125' [Concomitant]
     Indication: LOWER RESPIRATORY TRACT INFECTION
     Dosage: 1875 MG, UNK
     Route: 048
     Dates: start: 20110314
  4. 5F 203 L-LYSYLAMIDE [Suspect]
     Indication: NON-SMALL CELL LUNG CANCER
     Dosage: 49.8 MG, UNK
     Route: 042
     Dates: start: 20110228

REACTIONS (3)
  - BODY TEMPERATURE INCREASED [None]
  - DYSPNOEA [None]
  - PULMONARY EMBOLISM [None]
